FAERS Safety Report 15932882 (Version 1)
Quarter: 2019Q1

REPORT INFORMATION
  Report Type: Spontaneous
  Country: HR (occurrence: HR)
  Receive Date: 20190207
  Receipt Date: 20190207
  Transmission Date: 20190417
  Serious: Yes (Life-Threatening, Hospitalization, Other)
  Sender: FDA-Public Use
  Company Number: HR-SA-2019SA012031

PATIENT
  Age: 40 Year
  Sex: Male

DRUGS (12)
  1. CAFFEINE. [Suspect]
     Active Substance: CAFFEINE
     Dosage: UNK UNK, UNK
  2. PROMAZINE [Concomitant]
     Active Substance: PROMAZINE
     Indication: PSYCHOTIC SYMPTOM
     Dosage: 300 MG, QD
     Dates: start: 2017, end: 2017
  3. DIAZEPAM. [Concomitant]
     Active Substance: DIAZEPAM
     Indication: PSYCHOTIC SYMPTOM
     Dosage: 30 MG, QD
  4. DIAZEPAM. [Concomitant]
     Active Substance: DIAZEPAM
     Indication: SCHIZOPHRENIA
  5. HALOPERIDOL. [Concomitant]
     Active Substance: HALOPERIDOL
     Indication: PSYCHOTIC SYMPTOM
     Dosage: 30 MG, QD
     Dates: start: 2017, end: 2017
  6. PROPOFOL. [Concomitant]
     Active Substance: PROPOFOL
     Indication: PREMEDICATION
     Dosage: UNK
  7. NICOTINE. [Suspect]
     Active Substance: NICOTINE
     Dosage: UNK
  8. HALOPERIDOL. [Concomitant]
     Active Substance: HALOPERIDOL
     Indication: DRUG RESISTANCE
  9. CLOZAPINE. [Suspect]
     Active Substance: CLOZAPINE
     Indication: SCHIZOPHRENIA
     Dosage: 350 MG, QD
  10. PROMAZINE [Concomitant]
     Active Substance: PROMAZINE
     Indication: DRUG RESISTANCE
  11. ATROPINE. [Concomitant]
     Active Substance: ATROPINE
     Indication: PREMEDICATION
     Dosage: UNK
  12. SUCCINYLCHOLINE CHLORIDE. [Concomitant]
     Active Substance: SUCCINYLCHOLINE CHLORIDE
     Indication: PREMEDICATION
     Dosage: UNK

REACTIONS (9)
  - Radial pulse abnormal [Recovered/Resolved]
  - Dyspnoea [Unknown]
  - Ejection fraction decreased [Recovered/Resolved]
  - Abdominal pain upper [Unknown]
  - Drug dependence [Unknown]
  - Pallor [Unknown]
  - Stress cardiomyopathy [Recovered/Resolved]
  - Tachycardia [Recovered/Resolved]
  - Tachypnoea [Unknown]
